FAERS Safety Report 6595523-3 (Version None)
Quarter: 2010Q1

REPORT INFORMATION
  Report Type: 
  Country: None (occurrence: None)
  Receive Date: 20100223
  Receipt Date: 20100215
  Transmission Date: 20100710
  Serious: Yes (Other)
  Sender: FDA-Public Use
  Company Number: IT-JNJFOC-20100207777

PATIENT
  Age: 46 Year
  Sex: Female

DRUGS (3)
  1. HALDOL [Suspect]
     Indication: SELF INJURIOUS BEHAVIOUR
     Route: 048
  2. ANSIOLIN [Suspect]
     Indication: SELF INJURIOUS BEHAVIOUR
     Route: 048
  3. TEGRETOL [Suspect]
     Indication: SELF INJURIOUS BEHAVIOUR
     Route: 048

REACTIONS (3)
  - COMA [None]
  - SELF INJURIOUS BEHAVIOUR [None]
  - TACHYCARDIA [None]
